FAERS Safety Report 6284935-3 (Version None)
Quarter: 2009Q3

REPORT INFORMATION
  Report Type: 
  Country: None (occurrence: None)
  Receive Date: 20090727
  Receipt Date: 20090717
  Transmission Date: 20100115
  Serious: Yes (Other)
  Sender: FDA-Public Use
  Company Number: US-AMGEN-QUU356403

PATIENT
  Age: 54 Year
  Sex: Female

DRUGS (2)
  1. ENBREL [Suspect]
     Indication: PSORIASIS
  2. UNSPECIFIED STEROIDS [Concomitant]

REACTIONS (3)
  - DRUG ERUPTION [None]
  - OEDEMA PERIPHERAL [None]
  - SWELLING FACE [None]
